FAERS Safety Report 15996671 (Version 5)
Quarter: 2019Q2

REPORT INFORMATION
  Report Type: Spontaneous
  Country: FI (occurrence: FI)
  Receive Date: 20190222
  Receipt Date: 20190612
  Transmission Date: 20190711
  Serious: Yes (Hospitalization)
  Sender: FDA-Public Use
  Company Number: FI-ASTRAZENECA-2018SE60381

PATIENT
  Sex: Female

DRUGS (30)
  1. SOMAC [Suspect]
     Active Substance: PANTOPRAZOLE SODIUM
     Indication: PRODUCT USED FOR UNKNOWN INDICATION
     Route: 065
  2. PRIMASPAN [Suspect]
     Active Substance: ASPIRIN
     Indication: CEREBRAL INFARCTION
     Dosage: STRENGTH: 50 MG
     Route: 048
  3. ROSUVASTATIN. [Interacting]
     Active Substance: ROSUVASTATIN
     Indication: ANGIOPLASTY
     Dosage: STRENGTH- 20 MG
     Route: 048
  4. THYROXIN [Suspect]
     Active Substance: LEVOTHYROXINE
     Indication: MUSCULOSKELETAL PAIN
     Dosage: 1 TABLET ON 3 DAYS, HALF TABLET ON 4 DAYS; STRENGTH: 25 MCG25UG/INHAL EVERY EIGHT HOURS
     Route: 048
     Dates: start: 20161214
  5. DIAPAM (DIAZEPAM) [Suspect]
     Active Substance: DIAZEPAM
     Indication: PRODUCT USED FOR UNKNOWN INDICATION
     Dosage: STRENGTH: 5 MG
     Route: 048
  6. KEFEXIN [Suspect]
     Active Substance: CEPHALEXIN
     Indication: INFLAMMATION
     Dosage: START: NOV-DECEMBER
     Route: 065
  7. BUVENTOL EASYHALER [Suspect]
     Active Substance: ALBUTEROL SULFATE
     Indication: DYSPNOEA
     Dosage: 1 DOSE WHEN NEEDED200UG/INHAL
     Route: 055
     Dates: start: 201806
  8. PRIMASPAN [Suspect]
     Active Substance: ASPIRIN
     Indication: CEREBRAL INFARCTION
     Dosage: STRENGTH: 100 MG
     Route: 048
  9. CLOPIDOGREL [Interacting]
     Active Substance: CLOPIDOGREL BISULFATE
     Indication: ANGIOPLASTY
     Route: 065
  10. BURANA [Suspect]
     Active Substance: IBUPROFEN
     Indication: MUSCULOSKELETAL PAIN
     Dosage: STRENGTH: 800 MG
     Route: 048
     Dates: start: 20161214
  11. ZOLT [LANSOPRAZOLE] [Suspect]
     Active Substance: LANSOPRAZOLE
     Indication: ANGIOPLASTY
     Dosage: 30 MG X 1
     Route: 048
     Dates: start: 20180110, end: 201803
  12. DULOXETINE. [Concomitant]
     Active Substance: DULOXETINE
     Indication: PRODUCT USED FOR UNKNOWN INDICATION
  13. THYROXIN [Suspect]
     Active Substance: LEVOTHYROXINE
     Indication: HYPOTHYROIDISM
     Dosage: 1 TABLET ON 3 DAYS, HALF TABLET ON 4 DAYS; STRENGTH: 25 MCG25UG/INHAL EVERY EIGHT HOURS
     Route: 048
     Dates: start: 20161214
  14. CLOPIDOGREL [Interacting]
     Active Substance: CLOPIDOGREL BISULFATE
     Indication: ANGIOPLASTY
     Dosage: STRENGTH: 75 MG
     Route: 048
     Dates: start: 20180110, end: 201803
  15. ZOLT [LANSOPRAZOLE] [Suspect]
     Active Substance: LANSOPRAZOLE
     Indication: ANGIOPLASTY
     Route: 065
  16. PRIMASPAN [Suspect]
     Active Substance: ASPIRIN
     Indication: CEREBRAL INFARCTION
     Dosage: NON-AZ
     Route: 048
  17. ROSUVASTATIN. [Interacting]
     Active Substance: ROSUVASTATIN
     Indication: ANGIOPLASTY
     Route: 048
  18. ZOLT [LANSOPRAZOLE] [Suspect]
     Active Substance: LANSOPRAZOLE
     Indication: ABDOMINAL DISCOMFORT
     Dosage: 30 MG X 1
     Route: 048
     Dates: start: 20180110, end: 201803
  19. STILNOCT [Concomitant]
     Active Substance: ZOLPIDEM TARTRATE
  20. PANADOL [Concomitant]
     Active Substance: ACETAMINOPHEN
  21. ROSUVASTATIN. [Interacting]
     Active Substance: ROSUVASTATIN
     Indication: ANGIOPLASTY
     Dosage: STRENGTH: 40 MG; 20 MG X 1
     Route: 048
     Dates: start: 201801, end: 201802
  22. THYROXIN [Suspect]
     Active Substance: LEVOTHYROXINE
     Indication: HYPOTHYROIDISM
     Route: 065
  23. ZOLT [LANSOPRAZOLE] [Suspect]
     Active Substance: LANSOPRAZOLE
     Indication: ABDOMINAL DISCOMFORT
     Route: 065
  24. CLOPIDOGREL [Interacting]
     Active Substance: CLOPIDOGREL BISULFATE
     Indication: ANGIOPLASTY
     Dosage: STRENGTH: 75 MG
     Route: 048
     Dates: start: 20180110, end: 201804
  25. BUVENTOL EASYHALER [Suspect]
     Active Substance: ALBUTEROL SULFATE
     Indication: DYSPNOEA
     Route: 065
  26. THYROXIN [Suspect]
     Active Substance: LEVOTHYROXINE
     Indication: MUSCULOSKELETAL PAIN
     Route: 065
  27. CLOPIDOGREL [Interacting]
     Active Substance: CLOPIDOGREL BISULFATE
     Indication: ANGIOPLASTY
     Route: 048
     Dates: start: 20180110, end: 201802
  28. ZOLT [LANSOPRAZOLE] [Suspect]
     Active Substance: LANSOPRAZOLE
     Indication: ANGIOPLASTY
     Dosage: STRENGTH: 30 MG
     Route: 048
     Dates: start: 20180110, end: 201802
  29. ZOLT [LANSOPRAZOLE] [Suspect]
     Active Substance: LANSOPRAZOLE
     Indication: ABDOMINAL DISCOMFORT
     Dosage: STRENGTH: 30 MG
     Route: 048
     Dates: start: 20180110, end: 201802
  30. HISTEC [Suspect]
     Active Substance: CETIRIZINE HYDROCHLORIDE
     Indication: PRODUCT USED FOR UNKNOWN INDICATION
     Dosage: DAILY
     Route: 065

REACTIONS (44)
  - Drug interaction [Unknown]
  - Nervous system disorder [Unknown]
  - Confusional state [Not Recovered/Not Resolved]
  - Headache [Not Recovered/Not Resolved]
  - Loss of control of legs [Unknown]
  - Facial pain [Not Recovered/Not Resolved]
  - Thyroid function test abnormal [Unknown]
  - Acne [Not Recovered/Not Resolved]
  - Diverticulitis [Unknown]
  - Haematoma [Not Recovered/Not Resolved]
  - Asthenia [Not Recovered/Not Resolved]
  - Scleral discolouration [Not Recovered/Not Resolved]
  - Arthralgia [Not Recovered/Not Resolved]
  - Movement disorder [Not Recovered/Not Resolved]
  - Pain in extremity [Unknown]
  - Condition aggravated [Unknown]
  - Vision blurred [Not Recovered/Not Resolved]
  - Intestinal cyst [Unknown]
  - Palpitations [Not Recovered/Not Resolved]
  - Paraesthesia [Not Recovered/Not Resolved]
  - Abdominal discomfort [Unknown]
  - Weight decreased [Unknown]
  - Facial spasm [Not Recovered/Not Resolved]
  - Nerve compression [Unknown]
  - Product prescribing error [Unknown]
  - Abdominal distension [Unknown]
  - Dyspnoea [Recovered/Resolved]
  - Rash macular [Not Recovered/Not Resolved]
  - Malaise [Unknown]
  - Myalgia [Not Recovered/Not Resolved]
  - Nerve compression [Unknown]
  - Inflammatory marker increased [Unknown]
  - Muscular weakness [Unknown]
  - Muscle strain [Unknown]
  - Palmar erythema [Unknown]
  - Hernia [Unknown]
  - Angina pectoris [Unknown]
  - Hypotension [Unknown]
  - Constipation [Unknown]
  - Abdominal pain upper [Not Recovered/Not Resolved]
  - Osteoarthritis [Not Recovered/Not Resolved]
  - Muscle spasms [Not Recovered/Not Resolved]
  - Amnesia [Not Recovered/Not Resolved]
  - Drug ineffective [Unknown]

NARRATIVE: CASE EVENT DATE: 2016
